FAERS Safety Report 15458194 (Version 3)
Quarter: 2018Q4

REPORT INFORMATION
  Report Type: Spontaneous
  Country: US (occurrence: US)
  Receive Date: 20181003
  Receipt Date: 20181113
  Transmission Date: 20190204
  Serious: Yes (Other)
  Sender: FDA-Public Use
  Company Number: US-AMGEN-USASP2018131268

PATIENT
  Age: 64 Year
  Sex: Male
  Weight: 131.7 kg

DRUGS (2)
  1. XGEVA [Suspect]
     Active Substance: DENOSUMAB
     Indication: PROSTATE CANCER
  2. XGEVA [Suspect]
     Active Substance: DENOSUMAB
     Indication: METASTASES TO BONE
     Dosage: UNK UNK, Q4WK
     Route: 058
     Dates: start: 201401

REACTIONS (3)
  - Fracture delayed union [Unknown]
  - Post procedural infection [Unknown]
  - Femur fracture [Unknown]

NARRATIVE: CASE EVENT DATE: 20180210
